FAERS Safety Report 6971037-3 (Version None)
Quarter: 2010Q3

REPORT INFORMATION
  Report Type: 
  Country: None (occurrence: None)
  Receive Date: 20100824
  Receipt Date: 20100304
  Transmission Date: 20110219
  Serious: Yes (Other)
  Sender: FDA-Public Use
  Company Number: 2010029212

PATIENT
  Age: 77 Year
  Sex: Female
  Weight: 68 kg

DRUGS (1)
  1. AMLODIPINE BESYLATE (AMLODIPINE BESYLATE) FILM-COATED TABLET [Suspect]
     Indication: BLOOD PRESSURE
     Dosage: 5 MG, 1X/DAY; 5 MG, 1X/DAY
     Dates: start: 20091118, end: 20090101

REACTIONS (4)
  - BLOOD PRESSURE INADEQUATELY CONTROLLED [None]
  - HYPERHIDROSIS [None]
  - INSOMNIA [None]
  - NAUSEA [None]
